FAERS Safety Report 12408772 (Version 1)
Quarter: 2016Q2

REPORT INFORMATION
  Report Type: Spontaneous
  Country: FR (occurrence: FR)
  Receive Date: 20160526
  Receipt Date: 20160526
  Transmission Date: 20160815
  Serious: Yes (Hospitalization, Other)
  Sender: FDA-Public Use
  Company Number: FR-ASTRAZENECA-2016SE53774

PATIENT
  Age: 26359 Day
  Sex: Female

DRUGS (9)
  1. XEROQUEL [Suspect]
     Active Substance: QUETIAPINE FUMARATE
     Route: 048
     Dates: start: 20160226, end: 20160227
  2. TRIATEC [Concomitant]
     Active Substance: RAMIPRIL
  3. XARELTO [Concomitant]
     Active Substance: RIVAROXABAN
     Dates: start: 20160226
  4. IMOVANE [Suspect]
     Active Substance: ZOPICLONE
     Route: 048
     Dates: end: 20160227
  5. THERALENE [Suspect]
     Active Substance: TRIMEPRAZINE
     Route: 048
     Dates: start: 20160226, end: 20160227
  6. DEPAKOTE [Suspect]
     Active Substance: DIVALPROEX SODIUM
     Dosage: 500 MG, THREE TIMES A DAY
     Route: 065
     Dates: start: 20160226, end: 20160227
  7. VALIUM [Suspect]
     Active Substance: DIAZEPAM
     Route: 048
     Dates: start: 20160226, end: 20160227
  8. PERINDOPRIL-INDAPAMIDE [Concomitant]
     Dosage: 2 MG/0.625 MG, UNKNOWN
  9. FLUDEX [Concomitant]
     Active Substance: INDAPAMIDE

REACTIONS (6)
  - Acute respiratory failure [Recovered/Resolved]
  - Hypercapnic coma [Recovered/Resolved]
  - Lung disorder [Recovered/Resolved]
  - Streptococcus test positive [Unknown]
  - Hypotension [Unknown]
  - Pneumonia aspiration [Unknown]

NARRATIVE: CASE EVENT DATE: 20160227
